FAERS Safety Report 18563338 (Version 3)
Quarter: 2025Q3

REPORT INFORMATION
  Report Type: Spontaneous
  Country: US (occurrence: US)
  Receive Date: 20201201
  Receipt Date: 20250920
  Transmission Date: 20251021
  Serious: Yes (Life-Threatening, Hospitalization, Disabling, Other)
  Sender: ACCORD
  Company Number: US-ACCORD-209231

PATIENT
  Age: 81 Year
  Sex: Female

DRUGS (1)
  1. MYCOPHENOLATE MOFETIL [Suspect]
     Active Substance: MYCOPHENOLATE MOFETIL
     Indication: Eosinophilic granulomatosis with polyangiitis

REACTIONS (4)
  - Central nervous system lymphoma [Recovered/Resolved]
  - Immunodeficiency [Recovered/Resolved]
  - Off label use [Unknown]
  - Epstein-Barr virus associated lymphoproliferative disorder [Recovering/Resolving]
